FAERS Safety Report 10473050 (Version 2)
Quarter: 2015Q1

REPORT INFORMATION
  Report Type: Spontaneous
  Country: US (occurrence: US)
  Receive Date: 20140924
  Receipt Date: 20150326
  Transmission Date: 20150720
  Serious: No
  Sender: FDA-Public Use
  Company Number: US-SA-2014SA083248

PATIENT
  Age: 32 Year
  Sex: Female

DRUGS (1)
  1. AUBAGIO [Suspect]
     Active Substance: TERIFLUNOMIDE
     Indication: PRODUCT USED FOR UNKNOWN INDICATION
     Route: 065
     Dates: start: 20140212

REACTIONS (1)
  - Alopecia [Recovering/Resolving]
